FAERS Safety Report 10571383 (Version 4)
Quarter: 2016Q3

REPORT INFORMATION
  Report Type: Spontaneous
  Country: US (occurrence: US)
  Receive Date: 20141107
  Receipt Date: 20160722
  Transmission Date: 20161109
  Serious: Yes (Hospitalization)
  Sender: FDA-Public Use
  Company Number: US-BAYER-2014-162715

PATIENT
  Age: 37 Year
  Sex: Female

DRUGS (2)
  1. MIRENA [Suspect]
     Active Substance: LEVONORGESTREL
     Indication: MENORRHAGIA
     Dosage: 20MCG/24HR,CONT
     Route: 015
     Dates: start: 20070418, end: 20080313
  2. MIRENA [Suspect]
     Active Substance: LEVONORGESTREL
     Indication: MENORRHAGIA
     Dosage: 20 MCG/24HR, CONT
     Route: 015
     Dates: start: 20120525, end: 20131205

REACTIONS (6)
  - Embedded device [None]
  - Device difficult to use [None]
  - Pain [None]
  - Device failure [None]
  - Device issue [None]
  - Injury [None]

NARRATIVE: CASE EVENT DATE: 200803
